FAERS Safety Report 6929702-X (Version None)
Quarter: 2010Q3

REPORT INFORMATION
  Report Type: 
  Country: None (occurrence: None)
  Receive Date: 20100818
  Receipt Date: 20100809
  Transmission Date: 20110219
  Serious: Yes (Other)
  Sender: FDA-Public Use
  Company Number: BR-SANOFI-AVENTIS-2010SA046969

PATIENT
  Age: 56 Year
  Sex: Female
  Weight: 54 kg

DRUGS (4)
  1. PLAVIX [Suspect]
     Indication: PROPHYLAXIS AGAINST TRANSPLANT REJECTION
     Route: 048
     Dates: start: 20090909, end: 20091101
  2. RIVOTRIL [Concomitant]
     Indication: SLEEP DISORDER
     Route: 048
     Dates: start: 20000101, end: 20091101
  3. TRYPTANOL /BRA/ [Concomitant]
     Indication: ANXIETY
     Dosage: DOSE:1 UNIT(S)
     Route: 048
     Dates: start: 20100101
  4. CENTRUM [Concomitant]
     Indication: VITAMIN SUPPLEMENTATION
     Dosage: DOSE:1 UNIT(S)
     Route: 048
     Dates: start: 20100101

REACTIONS (5)
  - DIARRHOEA [None]
  - DRUG HYPERSENSITIVITY [None]
  - OFF LABEL USE [None]
  - SYNCOPE [None]
  - VOMITING [None]
